FAERS Safety Report 5330584-0 (Version None)
Quarter: 2007Q2

REPORT INFORMATION
  Report Type: 
  Country: None (occurrence: None)
  Receive Date: 20070516
  Receipt Date: 20070430
  Transmission Date: 20071010
  Serious: Yes (Death, Hospitalization)
  Sender: FDA-Public Use
  Company Number: 2005EU002137

PATIENT
  Age: 64 Year
  Sex: Male

DRUGS (9)
  1. TACROLIMUS [Suspect]
     Indication: LIVER TRANSPLANT
     Dosage: 4 MG, UID/QD, ORAL
     Route: 048
     Dates: start: 20050616, end: 20050920
  2. MYCOPHENOLATE MOFETIL [Suspect]
     Indication: LIVER TRANSPLANT
     Dosage: 1000.00 MG, UID/QD, IV  NOS, 1000 MG, BID, ORAL
     Route: 042
     Dates: start: 20050616, end: 20050616
  3. MYCOPHENOLATE MOFETIL [Suspect]
     Indication: LIVER TRANSPLANT
     Dosage: 1000.00 MG, UID/QD, IV  NOS, 1000 MG, BID, ORAL
     Route: 042
     Dates: start: 20050619, end: 20050822
  4. METHYLPREDNISOLONE [Suspect]
     Indication: LIVER TRANSPLANT
     Dosage: 30 MG, UID/QD
     Dates: start: 20050615, end: 20050911
  5. PREDNISONE TAB [Suspect]
     Indication: LIVER TRANSPLANT
     Dosage: 10 MG, UID/QD
     Dates: start: 20050621, end: 20050925
  6. BUDESONIDE [Concomitant]
  7. INSULIN HUMAN (INSULIN HUMAN) [Concomitant]
  8. ESOMEPRAZOLE (ESOMEPRAZOLE) [Concomitant]
  9. FUROSEMIDE (FUROSEMIDE SODIUM) [Concomitant]

REACTIONS (17)
  - ASCITES [None]
  - AUTOIMMUNE HEPATITIS [None]
  - BLOOD BILIRUBIN INCREASED [None]
  - COUGH [None]
  - DISEASE RECURRENCE [None]
  - DRUG TOXICITY [None]
  - GENERAL PHYSICAL CONDITION ABNORMAL [None]
  - HAEMOTHORAX [None]
  - HEPATIC ENZYME INCREASED [None]
  - HEPATITIS C [None]
  - LIVER TRANSPLANT REJECTION [None]
  - MALNUTRITION [None]
  - MULTI-ORGAN FAILURE [None]
  - PLEURAL INFECTION [None]
  - PLEURISY [None]
  - PYOTHORAX [None]
  - SEPSIS [None]
